FAERS Safety Report 8182940-3 (Version None)
Quarter: 2012Q1

REPORT INFORMATION
  Report Type: 
  Country: None (occurrence: None)
  Receive Date: 20120305
  Receipt Date: 20120224
  Transmission Date: 20120608
  Serious: Yes (Hospitalization)
  Sender: FDA-Public Use
  Company Number: IT-TEVA-325205ISR

PATIENT
  Sex: Female

DRUGS (3)
  1. FLUOROURACIL [Suspect]
     Indication: OROPHARYNGEAL CANCER STAGE UNSPECIFIED
     Dosage: 1095 MILLIGRAM;
     Route: 042
     Dates: start: 20120211, end: 20120214
  2. CISPLATINO HOSPIRA [Concomitant]
     Dosage: 110 MILLIGRAM;
     Route: 042
  3. ASPIRIN [Concomitant]
     Dosage: 160 MILLIGRAM;
     Route: 048

REACTIONS (3)
  - DYSPNOEA [None]
  - FACE OEDEMA [None]
  - MACROGLOSSIA [None]
